FAERS Safety Report 7568540-4 (Version None)
Quarter: 2011Q2

REPORT INFORMATION
  Report Type: 
  Country: None (occurrence: None)
  Receive Date: 20110623
  Receipt Date: 20110622
  Transmission Date: 20111010
  Serious: Yes (Other)
  Sender: FDA-Public Use
  Company Number: US-PFIZER INC-2011087480

PATIENT
  Sex: Female
  Weight: 95.238 kg

DRUGS (7)
  1. CLONIDINE [Concomitant]
     Indication: HYPERTENSION
     Dosage: 0.1 MG, DAILY
  2. IRON SUPPLEMENT [Concomitant]
     Indication: ANAEMIA
     Dosage: UNK
  3. HYDROCHLOROTHIAZIDE [Concomitant]
     Indication: HYPERTENSION
     Dosage: 25 MG, DAILY
  4. CHANTIX [Suspect]
     Indication: SMOKING CESSATION THERAPY
     Dosage: 0.5 MG, DAILY
     Route: 048
     Dates: start: 20110401
  5. RAMIPRIL [Concomitant]
     Indication: HYPERTENSION
     Dosage: 5 MG, DAILY
  6. POTASSIUM [Concomitant]
     Indication: BLOOD POTASSIUM DECREASED
     Dosage: 20 MEQ, DAILY
  7. TOPAMAX [Interacting]
     Indication: BIPOLAR DISORDER
     Dosage: 25 MG, 2X/DAY

REACTIONS (3)
  - DRUG INTERACTION [None]
  - MANIA [None]
  - DRUG INEFFECTIVE [None]
